FAERS Safety Report 14800050 (Version 1)
Quarter: 2018Q2

REPORT INFORMATION
  Report Type: Report from Study
  Country: JP (occurrence: JP)
  Receive Date: 20180424
  Receipt Date: 20180424
  Transmission Date: 20180711
  Serious: Yes (Other)
  Sender: FDA-Public Use
  Company Number: JP-MYLANLABS-2018M1025774

PATIENT
  Age: 15 Year
  Sex: Female

DRUGS (5)
  1. PREDNISOLONE. [Suspect]
     Active Substance: PREDNISOLONE
     Dosage: DAYS 15-28 (INDUCTION); DAYS 1-14 (RE-INDUCTION); DAYS 1-7 (MAINTENANCE)
     Route: 065
  2. DEXAMETHASONE. [Suspect]
     Active Substance: DEXAMETHASONE
     Indication: ACUTE LYMPHOCYTIC LEUKAEMIA
     Dosage: ON DAYS 8-14 (INDUCTION); DAYS 1-5 (CONSOLIDATION + RE-CONSOLIDATION)
     Route: 065
  3. PREDNISOLONE. [Suspect]
     Active Substance: PREDNISOLONE
     Indication: ACUTE LYMPHOCYTIC LEUKAEMIA
     Dosage: 15-60 MG/M2 ON DAYS 1-7 (INDUCTION)
     Route: 065
  4. L-ASPARAGINASE [Suspect]
     Active Substance: ASPARAGINASE
     Indication: ACUTE LYMPHOCYTIC LEUKAEMIA
     Dosage: 6000 IU/M2 ON DAYS 15, 17, 19, 22, 24, 26 (INDUCTION); DAYS 1, 3, 5, 8, 10, 12 (RE-INDUCTION)
     Route: 065
  5. L-ASPARAGINASE [Suspect]
     Active Substance: ASPARAGINASE
     Dosage: 10000 IU/M2 ON DAY1 (MAINTENANCE)
     Route: 065

REACTIONS (1)
  - Osteonecrosis [Recovering/Resolving]
